FAERS Safety Report 14811932 (Version 2)
Quarter: 2018Q2

REPORT INFORMATION
  Report Type: Report from Study
  Country: DE (occurrence: DE)
  Receive Date: 20180425
  Receipt Date: 20180523
  Transmission Date: 20180711
  Serious: Yes (Other)
  Sender: FDA-Public Use
  Company Number: PHHY2018DE070899

PATIENT

DRUGS (16)
  1. VOTRIENT [Suspect]
     Active Substance: PAZOPANIB HYDROCHLORIDE
     Dosage: 600 MG, QD
     Route: 048
     Dates: start: 20170217, end: 20170302
  2. VOTRIENT [Suspect]
     Active Substance: PAZOPANIB HYDROCHLORIDE
     Dosage: 800 MG, QD
     Route: 048
     Dates: start: 20170303, end: 20171016
  3. VOTRIENT [Suspect]
     Active Substance: PAZOPANIB HYDROCHLORIDE
     Indication: METASTATIC RENAL CELL CARCINOMA
     Dosage: 400 MG, QD
     Route: 048
     Dates: start: 20170201, end: 20170216
  4. RENVELA [Concomitant]
     Active Substance: SEVELAMER CARBONATE
     Indication: PROPHYLAXIS
     Dosage: 800 MG, UNK
     Route: 048
     Dates: start: 2012
  5. MIMPARA [Concomitant]
     Active Substance: CINACALCET HYDROCHLORIDE
     Indication: HYPERPARATHYROIDISM SECONDARY
     Dosage: 90 MG, QD
     Route: 048
     Dates: start: 2012
  6. CPS [Concomitant]
     Indication: END STAGE RENAL DISEASE
     Dosage: UNK UNK, BID
     Route: 065
     Dates: start: 2012
  7. CLEXANE [Concomitant]
     Active Substance: ENOXAPARIN SODIUM
     Indication: PULMONARY EMBOLISM
     Dosage: 40 MG, BID
     Route: 058
     Dates: start: 201701
  8. DIGIMERCK [Concomitant]
     Active Substance: DIGITOXIN
     Indication: ESSENTIAL HYPERTENSION
     Dosage: 0.07 MG, QD
     Route: 048
     Dates: start: 2002
  9. CYMBALTA [Concomitant]
     Active Substance: DULOXETINE HYDROCHLORIDE
     Indication: PROPHYLAXIS
     Dosage: 60 MG, UNK
     Route: 048
     Dates: start: 2002
  10. FENTANYL BETA [Concomitant]
     Indication: PAIN
     Dosage: 50 UG, UNK
     Route: 062
     Dates: start: 2002
  11. KREON [Concomitant]
     Active Substance: PANCRELIPASE
     Indication: PROPHYLAXIS
     Dosage: 300 MG, TID
     Route: 048
     Dates: start: 2014
  12. BONDIOL [Concomitant]
     Active Substance: ALFACALCIDOL
     Indication: END STAGE RENAL DISEASE
     Dosage: 1 UG, QD
     Route: 048
     Dates: start: 2013
  13. MACROGOL [Concomitant]
     Active Substance: POLYETHYLENE GLYCOLS
     Indication: PROPHYLAXIS
     Dosage: UNK UNK, TID
     Route: 065
     Dates: start: 2001
  14. MCP [Concomitant]
     Active Substance: METOCLOPRAMIDE HYDROCHLORIDE
     Indication: PROPHYLAXIS
     Dosage: 10 MG, PRN
     Route: 065
     Dates: start: 20170330, end: 20171020
  15. DEKRISTOL [Concomitant]
     Active Substance: CHOLECALCIFEROL
     Indication: PROPHYLAXIS
     Dosage: UNK UNK, QW
     Route: 048
     Dates: start: 2008
  16. L-THYROXINE [Concomitant]
     Active Substance: LEVOTHYROXINE
     Indication: HYPOTHYROIDISM
     Dosage: 150 UG, QD
     Route: 048
     Dates: start: 1967

REACTIONS (4)
  - Concomitant disease aggravated [Unknown]
  - Blood calcium decreased [Unknown]
  - Blood creatinine increased [Unknown]
  - Blood potassium increased [Unknown]

NARRATIVE: CASE EVENT DATE: 20170201
